FAERS Safety Report 13583871 (Version 2)
Quarter: 2017Q3

REPORT INFORMATION
  Report Type: Spontaneous
  Country: CA (occurrence: CA)
  Receive Date: 20170526
  Receipt Date: 20170731
  Transmission Date: 20171127
  Serious: Yes (Other)
  Sender: FDA-Public Use
  Company Number: CA-ROCHE-1939206

PATIENT
  Age: 22 Year
  Sex: Female

DRUGS (6)
  1. XOLAIR [Suspect]
     Active Substance: OMALIZUMAB
     Indication: ASTHMA
     Dosage: 300 MG, EVERY 4 WEEKS
     Route: 058
     Dates: start: 20161215
  2. XOLAIR [Suspect]
     Active Substance: OMALIZUMAB
     Dosage: UNK
     Route: 058
     Dates: start: 20170712
  3. BREO ELLIPTA [Suspect]
     Active Substance: FLUTICASONE FUROATE\VILANTEROL TRIFENATATE
     Indication: PRODUCT USED FOR UNKNOWN INDICATION
     Route: 055
  4. SINGULAIR [Suspect]
     Active Substance: MONTELUKAST SODIUM
     Indication: PRODUCT USED FOR UNKNOWN INDICATION
     Route: 048
  5. VENTOLIN [Concomitant]
     Active Substance: ALBUTEROL SULFATE
     Indication: PRODUCT USED FOR UNKNOWN INDICATION
     Route: 065
  6. XOLAIR [Suspect]
     Active Substance: OMALIZUMAB
     Dosage: UNK
     Route: 058
     Dates: start: 20170118

REACTIONS (15)
  - Exercise tolerance decreased [Unknown]
  - Sensitivity to weather change [Unknown]
  - Weight increased [Recovering/Resolving]
  - Fear of injection [Unknown]
  - Nasal inflammation [Unknown]
  - Hyperaesthesia [Unknown]
  - Injection site pain [Unknown]
  - Gastrooesophageal reflux disease [Unknown]
  - Asthma [Recovering/Resolving]
  - Nasal turbinate hypertrophy [Unknown]
  - Dyspnoea exertional [Unknown]
  - Skin striae [Unknown]
  - Mycotic allergy [Unknown]
  - Syncope [Unknown]
  - Aspergillus test positive [Unknown]

NARRATIVE: CASE EVENT DATE: 20170113
